FAERS Safety Report 23286442 (Version 3)
Quarter: 2025Q2

REPORT INFORMATION
  Report Type: Report from Study
  Country: CA (occurrence: CA)
  Receive Date: 20231212
  Receipt Date: 20250522
  Transmission Date: 20250716
  Serious: No
  Sender: TAKEDA
  Company Number: CA-TAKEDA-2023TUS106162

PATIENT
  Age: 53 Year
  Sex: Female

DRUGS (1)
  1. VEDOLIZUMAB [Suspect]
     Active Substance: VEDOLIZUMAB
     Indication: Crohn^s disease

REACTIONS (3)
  - Joint stiffness [Recovered/Resolved]
  - Therapy non-responder [Recovering/Resolving]
  - Arthralgia [Recovered/Resolved]

NARRATIVE: CASE EVENT DATE: 20231116
